FAERS Safety Report 19659734 (Version 2)
Quarter: 2024Q3

REPORT INFORMATION
  Report Type: Spontaneous
  Country: US (occurrence: US)
  Receive Date: 20210804
  Receipt Date: 20240912
  Transmission Date: 20241017
  Serious: No
  Sender: SANOFI AVENTIS
  Company Number: US-SA-SAC20210803000272

PATIENT
  Age: 38 Year
  Sex: Female
  Weight: 108.18 kg

DRUGS (1)
  1. DUPIXENT [Suspect]
     Active Substance: DUPILUMAB
     Indication: Dermatitis atopic
     Dosage: 300 MG, QOW
     Route: 058
     Dates: start: 20210701

REACTIONS (7)
  - Rash pruritic [Unknown]
  - Scar [Unknown]
  - Dry skin [Unknown]
  - Erythema [Unknown]
  - Condition aggravated [Unknown]
  - Skin exfoliation [Unknown]
  - Insomnia [Unknown]

NARRATIVE: CASE EVENT DATE: 20210701
